FAERS Safety Report 6751030-6 (Version None)
Quarter: 2010Q2

REPORT INFORMATION
  Report Type: 
  Country: None (occurrence: None)
  Receive Date: 20100602
  Receipt Date: 20100524
  Transmission Date: 20101027
  Serious: Yes (Other)
  Sender: FDA-Public Use
  Company Number: US-ELI_LILLY_AND_COMPANY-US201005006621

PATIENT
  Age: 64 Year
  Sex: Female

DRUGS (4)
  1. HUMALOG [Suspect]
     Indication: TYPE 2 DIABETES MELLITUS
     Dosage: 30 U, UNK
  2. HUMALOG [Suspect]
     Dosage: 30 U, UNK
     Dates: start: 20100530, end: 20100530
  3. HUMALOG MIX 75/25 [Suspect]
     Dosage: UNK, AS NEEDED
  4. LANTUS [Concomitant]

REACTIONS (13)
  - ASTHENIA [None]
  - BLOOD GLUCOSE FLUCTUATION [None]
  - BLOOD GLUCOSE INCREASED [None]
  - CARDIAC FAILURE CONGESTIVE [None]
  - CARDIAC MURMUR [None]
  - DYSPNOEA [None]
  - FURUNCLE [None]
  - HAEMORRHAGE [None]
  - HYPERTENSION [None]
  - MALAISE [None]
  - MENTAL IMPAIRMENT [None]
  - NAUSEA [None]
  - POOR QUALITY DRUG ADMINISTERED [None]
